FAERS Safety Report 8890849 (Version 3)
Quarter: 2013Q1

REPORT INFORMATION
  Report Type: Spontaneous
  Country: US (occurrence: US)
  Receive Date: 20121107
  Receipt Date: 20130107
  Transmission Date: 20140127
  Serious: No
  Sender: FDA-Public Use
  Company Number: US-ASTRAZENECA-2012SE81077

PATIENT
  Age: 53 Year
  Sex: Male
  Weight: 104.3 kg

DRUGS (11)
  1. NEXIUM [Suspect]
     Indication: GASTROOESOPHAGEAL REFLUX DISEASE
     Route: 048
     Dates: end: 2012
  2. NEXIUM [Suspect]
     Indication: GASTROOESOPHAGEAL REFLUX DISEASE
     Dosage: GENERIC
     Route: 048
  3. ZANTAC [Concomitant]
  4. PERCOCET [Concomitant]
     Indication: PAIN
  5. MORPHINE [Concomitant]
     Indication: PAIN
  6. SOMA [Concomitant]
     Indication: PAIN
  7. XANAX [Concomitant]
     Indication: ANXIETY
  8. CELEXA [Concomitant]
     Indication: DEPRESSION
  9. ZOCOR [Concomitant]
     Indication: BLOOD CHOLESTEROL INCREASED
  10. LASIX [Concomitant]
  11. RAPAFLO [Concomitant]
     Indication: PROSTATOMEGALY

REACTIONS (12)
  - Gastrooesophageal reflux disease [Unknown]
  - Feeling abnormal [Unknown]
  - Dyspepsia [Unknown]
  - Feeling abnormal [Unknown]
  - Back pain [Unknown]
  - Joint injury [Unknown]
  - Rotator cuff syndrome [Unknown]
  - Fall [Unknown]
  - Arthritis [Unknown]
  - Headache [Unknown]
  - Arthralgia [Unknown]
  - Drug dose omission [Unknown]
